FAERS Safety Report 8333911-5 (Version None)
Quarter: 2012Q2

REPORT INFORMATION
  Report Type: 
  Country: None (occurrence: None)
  Receive Date: 20120503
  Receipt Date: 20120430
  Transmission Date: 20120825
  Serious: Yes (Other)
  Sender: FDA-Public Use
  Company Number: DE-ROCHE-1054071

PATIENT
  Sex: Female

DRUGS (7)
  1. LEVOTHYROXINE SODIUM [Concomitant]
  2. CALCIUM [Concomitant]
  3. PANTOPRAZOLE [Concomitant]
  4. VENLAFAXINE [Concomitant]
  5. AMITRIPTYLINE HCL [Concomitant]
  6. BONIVA [Suspect]
     Indication: OSTEOPOROSIS
     Route: 042
     Dates: start: 20120111
  7. ERGOCALCIFEROL [Concomitant]

REACTIONS (4)
  - BONE PAIN [None]
  - DIZZINESS [None]
  - FALL [None]
  - BODY TEMPERATURE DECREASED [None]
